FAERS Safety Report 10932592 (Version 2)
Quarter: 2015Q2

REPORT INFORMATION
  Report Type: Spontaneous
  Country: US (occurrence: None)
  Receive Date: 20150318
  Receipt Date: 20150513
  Transmission Date: 20150821
  Serious: Yes (Hospitalization)
  Sender: FDA-Public Use
  Company Number: 1713747-2015-99987

PATIENT
  Age: 78 Year
  Sex: Male

DRUGS (24)
  1. CARVEDILOL. [Concomitant]
     Active Substance: CARVEDILOL
  2. INLYTA [Concomitant]
     Active Substance: AXITINIB
  3. LIBERTY CYCLER SET [Concomitant]
  4. FINESTERIDE [Concomitant]
     Active Substance: FINASTERIDE
  5. LEVOTHYROXINE [Concomitant]
     Active Substance: LEVOTHYROXINE
  6. VITAMIN B [Concomitant]
     Active Substance: VITAMIN B
  7. XANAX [Concomitant]
     Active Substance: ALPRAZOLAM
  8. PANTOPRAROLE [Concomitant]
  9. AMIODARONE [Concomitant]
     Active Substance: AMIODARONE
  10. VITAMIN D [Concomitant]
     Active Substance: CHOLECALCIFEROL
  11. CENTAMICIN TOPICAL [Concomitant]
  12. DELFLEX [Suspect]
     Active Substance: CALCIUM CHLORIDE\DEXTROSE MONOHYDRATE\MAGNESIUM CHLORIDE\SODIUM CHLORIDE\SODIUM LACTATE
     Indication: CHRONIC KIDNEY DISEASE
     Route: 033
     Dates: start: 20150301
  13. FLOMAX [Concomitant]
     Active Substance: TAMSULOSIN HYDROCHLORIDE
  14. FISH OIL [Concomitant]
     Active Substance: FISH OIL
  15. ALIGN [Concomitant]
     Active Substance: BIFIDOBACTERIUM LONGUM SUBSP. INFANTIS
  16. LIBERTY CYCLER [Concomitant]
     Active Substance: DEVICE
  17. PRAVASTATIN [Concomitant]
     Active Substance: PRAVASTATIN\PRAVASTATIN SODIUM
  18. TRAZODONE [Concomitant]
     Active Substance: TRAZODONE HYDROCHLORIDE
  19. ALLOPURINOL. [Concomitant]
     Active Substance: ALLOPURINOL
  20. WARFARIN [Concomitant]
     Active Substance: WARFARIN
  21. BUMEX [Concomitant]
     Active Substance: BUMETANIDE
  22. LOMOTIL [Concomitant]
     Active Substance: ATROPINE SULFATE\DIPHENOXYLATE HYDROCHLORIDE
  23. POTASSIUM CHLORIDE. [Concomitant]
     Active Substance: POTASSIUM CHLORIDE
  24. RENAL CAPS DIALYSIS/STRESS VITAMIN SUPPLEMENT [Concomitant]
     Active Substance: ASCORBIC ACID\BIOTIN\CALCIUM PANTOTHENATE\CYANOCOBALAMIN\FOLIC ACID\NIACINAMIDE\PYRIDOXINE HYDROCHLORIDE\RIBOFLAVIN\THIAMINE MONONITRATE

REACTIONS (2)
  - Incarcerated hernia [None]
  - Small intestinal obstruction [None]

NARRATIVE: CASE EVENT DATE: 20150228
